FAERS Safety Report 8985960 (Version 1)
Quarter: 2012Q4

REPORT INFORMATION
  Report Type: 
  Country: US (occurrence: US)
  Receive Date: 20121226
  Receipt Date: 20121226
  Transmission Date: 20130627
  Serious: No
  Sender: FDA-Public Use
  Company Number: US-ABBOTT-12P-163-0890703-00

PATIENT
  Age: 58 Year
  Sex: Male
  Weight: 90.8 kg

DRUGS (2)
  1. LUPRON DEPOT 22.5 MG [Suspect]
     Indication: PROSTATE CANCER
     Dates: start: 201103
  2. CASODEX [Concomitant]
     Indication: PROSTATE CANCER

REACTIONS (4)
  - Affect lability [Not Recovered/Not Resolved]
  - Crying [Not Recovered/Not Resolved]
  - Emotional disorder [Not Recovered/Not Resolved]
  - Weight increased [Unknown]
